FAERS Safety Report 18038705 (Version 2)
Quarter: 2020Q3

REPORT INFORMATION
  Report Type: Spontaneous
  Country: JP (occurrence: JP)
  Receive Date: 20200717
  Receipt Date: 20200727
  Transmission Date: 20201103
  Serious: Yes (Death, Other)
  Sender: FDA-Public Use
  Company Number: JP-SAKK-2020SA183221AA

PATIENT

DRUGS (5)
  1. DAIKENCHUTO [Concomitant]
     Active Substance: HERBALS
     Indication: CONSTIPATION
     Dosage: 5 G, BID
     Route: 048
  2. ALDURAZYME [Suspect]
     Active Substance: LARONIDASE
     Indication: MUCOPOLYSACCHARIDOSIS I
     Dosage: 11.6 MG, QW
     Route: 041
     Dates: start: 20070410, end: 20200708
  3. ALDACTONE A [Concomitant]
     Active Substance: SPIRONOLACTONE
     Indication: MITRAL VALVE INCOMPETENCE
     Dosage: 9 MG, BID
     Route: 048
     Dates: start: 20061201, end: 20200715
  4. FUROSEMIDE. [Concomitant]
     Active Substance: FUROSEMIDE
     Indication: MITRAL VALVE INCOMPETENCE
     Dosage: 9 MG, BID
     Route: 048
     Dates: start: 20061201, end: 20200715
  5. ONON [Concomitant]
     Active Substance: PRANLUKAST
     Indication: RESPIRATORY DISORDER
     Dosage: 70 MG, BID
     Route: 048

REACTIONS (3)
  - Disease progression [Fatal]
  - Cyanosis [Fatal]
  - Asphyxia [Fatal]

NARRATIVE: CASE EVENT DATE: 20200715
